FAERS Safety Report 9288650 (Version 4)
Quarter: 2013Q2

REPORT INFORMATION
  Report Type: Spontaneous
  Country: US (occurrence: US)
  Receive Date: 20130514
  Receipt Date: 20130603
  Transmission Date: 20140414
  Serious: Yes (Hospitalization)
  Sender: FDA-Public Use
  Company Number: US-GILEAD-2013-0074574

PATIENT
  Sex: Female

DRUGS (3)
  1. LETAIRIS [Suspect]
     Indication: PULMONARY HYPERTENSION
     Dosage: 5 MG, QD
     Route: 048
     Dates: start: 20130311
  2. LETAIRIS [Suspect]
     Indication: SICKLE CELL ANAEMIA
  3. ADCIRCA [Concomitant]

REACTIONS (3)
  - Pain [Unknown]
  - Fungal infection [Unknown]
  - Infusion site infection [Unknown]
